FAERS Safety Report 7470334-5 (Version None)
Quarter: 2011Q2

REPORT INFORMATION
  Report Type: 
  Country: None (occurrence: None)
  Receive Date: 20110510
  Receipt Date: 20110412
  Transmission Date: 20111010
  Serious: No
  Sender: FDA-Public Use
  Company Number: US-BAYER-2011-033289

PATIENT
  Age: 82 Year
  Sex: Male
  Weight: 78 kg

DRUGS (4)
  1. QUINAPRIL [Concomitant]
  2. FOSAMAX [Concomitant]
  3. ATENOLOL [Concomitant]
  4. ALEVE (CAPLET) [Suspect]
     Indication: ARTHRITIS
     Dosage: 440 MG, BID
     Route: 048
     Dates: start: 20110101, end: 20110401

REACTIONS (2)
  - ARTHRITIS [None]
  - BLOOD PRESSURE INCREASED [None]
